FAERS Safety Report 6944501-0 (Version None)
Quarter: 2010Q3

REPORT INFORMATION
  Report Type: 
  Country: None (occurrence: None)
  Receive Date: 20100827
  Receipt Date: 20100816
  Transmission Date: 20110219
  Serious: Yes (Other)
  Sender: FDA-Public Use
  Company Number: US-PFIZER INC-2010103628

PATIENT
  Sex: Female

DRUGS (2)
  1. AROMASIN [Suspect]
     Indication: BREAST CANCER
     Dosage: UNK, DAILY
     Route: 048
     Dates: start: 20100201, end: 20100701
  2. ACETAMINOPHEN [Concomitant]
     Dosage: UNK, AS NEEDED

REACTIONS (3)
  - ABDOMINAL DISCOMFORT [None]
  - SKIN EXFOLIATION [None]
  - SLEEP DISORDER [None]
